FAERS Safety Report 7311815-4 (Version None)
Quarter: 2011Q1

REPORT INFORMATION
  Report Type: 
  Country: None (occurrence: None)
  Receive Date: 20110224
  Receipt Date: 20110218
  Transmission Date: 20110831
  Serious: Yes (Hospitalization)
  Sender: FDA-Public Use
  Company Number: TW-BRISTOL-MYERS SQUIBB COMPANY-15550403

PATIENT
  Age: 55 Year
  Sex: Female

DRUGS (2)
  1. ARIPIPRAZOLE [Suspect]
     Indication: DELUSION
     Dosage: START DOSE-2.5MG TITRATED TO 5 MG/DAY AND DOSE DECREASED TO 2.5 MG/D
  2. DULOXETINE HYDROCHLORIDE [Interacting]
     Indication: DEPRESSION
     Dosage: 1 DF= 60-90 MG/DAY FOR PREVIOUS 27 MONTHS

REACTIONS (2)
  - HYPERTENSIVE CRISIS [None]
  - DRUG INTERACTION [None]
